FAERS Safety Report 5925227-9 (Version None)
Quarter: 2008Q4

REPORT INFORMATION
  Report Type: 
  Country: None (occurrence: None)
  Receive Date: 20081020
  Receipt Date: 20081020
  Transmission Date: 20090506
  Serious: Yes (Other)
  Sender: FDA-Public Use
  Company Number: None

PATIENT
  Sex: Female
  Weight: 77.1115 kg

DRUGS (2)
  1. MELOXICAM [Suspect]
     Indication: BACK PAIN
     Dosage: 15 MG  QDAY PO
     Route: 048
     Dates: start: 20081002, end: 20081018
  2. MELOXICAM [Suspect]
     Indication: PELVIC PAIN
     Dosage: 15 MG  QDAY PO
     Route: 048
     Dates: start: 20081002, end: 20081018

REACTIONS (9)
  - ABDOMINAL DISTENSION [None]
  - ABDOMINAL PAIN [None]
  - ASTHENIA [None]
  - FLANK PAIN [None]
  - HEADACHE [None]
  - IRRITABILITY [None]
  - JAUNDICE [None]
  - NAUSEA [None]
  - URINE OUTPUT DECREASED [None]
